FAERS Safety Report 17042820 (Version 7)
Quarter: 2020Q1

REPORT INFORMATION
  Report Type: Report from Study
  Country: JP (occurrence: JP)
  Receive Date: 20191118
  Receipt Date: 20200127
  Transmission Date: 20200409
  Serious: Yes (Hospitalization)
  Sender: FDA-Public Use
  Company Number: JP-ROCHE-2468274

PATIENT
  Age: 86 Year
  Sex: Male

DRUGS (52)
  1. BEVACIZUMAB. [Suspect]
     Active Substance: BEVACIZUMAB
     Indication: HEPATOCELLULAR CARCINOMA
     Dosage: ON DAY 1 OF EACH 21 DAY CYCLE?DATE OF MOST RECENT DOSE OF BEVACIZUMAB (1021.5 MG) PRIOR TO AE/SAE ON
     Route: 042
     Dates: start: 20181001
  2. LIVACT [ISOLEUCINE;LEUCINE;VALINE] [Concomitant]
     Indication: HYPOALBUMINAEMIA
     Route: 065
     Dates: start: 20190318, end: 20191120
  3. SPIRONOLACTONE. [Concomitant]
     Active Substance: SPIRONOLACTONE
     Indication: ASCITES
     Route: 065
     Dates: start: 20190709, end: 20191123
  4. SPIRONOLACTONE. [Concomitant]
     Active Substance: SPIRONOLACTONE
     Indication: SCROTAL OEDEMA
  5. HIRUDOID [Concomitant]
     Active Substance: GLYCOSAMINOGLYCANS
     Indication: DRY SKIN
     Route: 065
     Dates: start: 20191111
  6. DIART [Concomitant]
     Active Substance: AZOSEMIDE
     Indication: OEDEMA PERIPHERAL
     Route: 065
     Dates: start: 20191123, end: 20191124
  7. VITAMEDIN INTRAVENOUS [Concomitant]
     Active Substance: CYANOCOBALAMIN\PYRIDOXINE HYDROCHLORIDE\THIAMINE
     Route: 042
     Dates: start: 20191106, end: 20191111
  8. GASMOTIN [Concomitant]
     Active Substance: MOSAPRIDE CITRATE
     Indication: CHRONIC GASTRITIS
     Route: 065
     Dates: start: 20121017, end: 20191124
  9. TALION [BEPOTASTINE BESILATE] [Concomitant]
     Active Substance: BEPOTASTINE BESYLATE
     Indication: PRURITUS
     Route: 065
     Dates: start: 20130131, end: 20191112
  10. REBAMIPIDE [Concomitant]
     Active Substance: REBAMIPIDE
     Indication: COLITIS
     Route: 065
     Dates: start: 20190930, end: 20191007
  11. NORVASC [Concomitant]
     Active Substance: AMLODIPINE BESYLATE
     Indication: HYPERTENSION
     Route: 065
     Dates: start: 20181031, end: 20191124
  12. FUROSEMIDE. [Concomitant]
     Active Substance: FUROSEMIDE
     Indication: SCROTAL OEDEMA
  13. LEVOFLOXACIN. [Concomitant]
     Active Substance: LEVOFLOXACIN
     Indication: COLITIS
     Route: 065
     Dates: start: 20190930, end: 20191006
  14. KAYTWO N [Concomitant]
     Active Substance: MENATETRENONE
     Route: 065
     Dates: start: 20191126
  15. BILANOA [Concomitant]
     Active Substance: BILASTINE
     Route: 065
     Dates: start: 20191113, end: 20191123
  16. VITAMEDIN INTRAVENOUS [Concomitant]
     Active Substance: CYANOCOBALAMIN\PYRIDOXINE HYDROCHLORIDE\THIAMINE
     Route: 042
     Dates: start: 20191125
  17. FUROSEMIDE. [Concomitant]
     Active Substance: FUROSEMIDE
     Indication: OEDEMA PERIPHERAL
     Route: 065
     Dates: start: 20191106, end: 20191119
  18. KERATINAMIN KOWA [UREA] [Concomitant]
     Route: 065
     Dates: start: 20181001
  19. OLMETEC [Concomitant]
     Active Substance: OLMESARTAN MEDOXOMIL
     Indication: HYPERTENSION
     Route: 065
     Dates: start: 20181204, end: 20191123
  20. LUNESTA [Concomitant]
     Active Substance: ESZOPICLONE
     Indication: INSOMNIA
     Route: 065
     Dates: start: 20191108
  21. SOLULACT [Concomitant]
     Route: 065
     Dates: start: 20191105, end: 20191105
  22. AMINOLEBAN EN [Concomitant]
     Active Substance: UNSPECIFIED INGREDIENT
     Indication: ASCITES
     Route: 065
     Dates: start: 20190708, end: 20191120
  23. AMINOLEBAN EN [Concomitant]
     Active Substance: UNSPECIFIED INGREDIENT
     Indication: SCROTAL OEDEMA
  24. URSO [Concomitant]
     Active Substance: URSODIOL
     Route: 065
     Dates: start: 20191111, end: 20191124
  25. RISPERIDONE. [Concomitant]
     Active Substance: RISPERIDONE
     Indication: DELIRIUM
     Route: 065
     Dates: start: 20191115, end: 20191124
  26. ALBUMINAR [Concomitant]
     Active Substance: ALBUMIN HUMAN
     Route: 042
     Dates: start: 20191106, end: 20191106
  27. FUCIDIN LEO [Concomitant]
     Active Substance: FUSIDATE SODIUM
     Indication: SCROTAL OEDEMA
     Route: 065
     Dates: start: 20191108
  28. MIDAZOLAM HYDROCHLORIDE. [Concomitant]
     Active Substance: MIDAZOLAM HYDROCHLORIDE
     Route: 065
     Dates: start: 20191119, end: 20191119
  29. TAKECAB [Concomitant]
     Active Substance: VONOPRAZAN FUMURATE
     Indication: CHRONIC GASTRITIS
     Route: 065
     Dates: start: 20160401, end: 20191124
  30. REMITCH [Concomitant]
     Active Substance: NALFURAFINE HYDROCHLORIDE
     Indication: PRURITUS
     Route: 065
     Dates: start: 20181112, end: 20191123
  31. FUROSEMIDE. [Concomitant]
     Active Substance: FUROSEMIDE
     Indication: ASCITES
     Route: 065
     Dates: start: 20191126
  32. ACELIO [Concomitant]
     Active Substance: ACETAMINOPHEN
     Indication: PYREXIA
     Route: 042
     Dates: start: 20191110, end: 20191111
  33. BELSOMRA [Concomitant]
     Active Substance: SUVOREXANT
     Indication: DELIRIUM
     Route: 065
     Dates: start: 20191116, end: 20191123
  34. SOLULACT [Concomitant]
     Route: 065
     Dates: start: 20191108, end: 20191111
  35. VEEN D [Concomitant]
     Active Substance: CALCIUM CHLORIDE\DEXTROSE\POTASSIUM CHLORIDE\SODIUM ACETATE\SODIUM CHLORIDE
     Route: 065
     Dates: start: 20191106, end: 20191107
  36. SOLDEM 1 [Concomitant]
     Active Substance: DEXTROSE\SODIUM CHLORIDE\SODIUM LACTATE
     Route: 065
     Dates: start: 20191112, end: 20191114
  37. GASTER [Concomitant]
     Active Substance: FAMOTIDINE
     Route: 065
     Dates: start: 20191126
  38. ACOFIDE [Concomitant]
     Active Substance: ACOTIAMIDE HYDROCHLORIDE
     Indication: CHRONIC GASTRITIS
     Route: 065
     Dates: start: 20140807, end: 20191125
  39. REBAMIPIDE [Concomitant]
     Active Substance: REBAMIPIDE
     Indication: CHRONIC GASTRITIS
     Route: 065
     Dates: start: 20150402, end: 20191112
  40. FUROSEMIDE. [Concomitant]
     Active Substance: FUROSEMIDE
     Indication: OEDEMA PERIPHERAL
     Route: 065
     Dates: start: 20190409, end: 20191124
  41. MIYA-BM [Concomitant]
     Active Substance: CLOSTRIDIUM BUTYRICUM SPORES STRAIN M-55
     Indication: COLITIS
     Route: 065
     Dates: start: 20190930, end: 20191021
  42. KAYTWO N [Concomitant]
     Active Substance: MENATETRENONE
     Route: 065
     Dates: start: 20191112, end: 20191124
  43. SOLDEM 6 [Concomitant]
     Route: 065
     Dates: start: 20191125
  44. AZUNOL GARGLE LIQUID [Concomitant]
     Indication: STOMATITIS
     Route: 065
     Dates: start: 20190717
  45. COCARL [Concomitant]
     Active Substance: ACETAMINOPHEN
     Indication: COLITIS
     Route: 065
     Dates: start: 20190930, end: 20191007
  46. ANTEBATE [Concomitant]
     Active Substance: BETAMETHASONE DIPROPIONATE
     Indication: SCROTAL OEDEMA
     Route: 061
     Dates: start: 20191105, end: 20191107
  47. HISHIPHAGEN COMBINATION [Concomitant]
     Route: 042
     Dates: start: 20191109, end: 20191127
  48. HALOPERIDOL. [Concomitant]
     Active Substance: HALOPERIDOL
     Indication: DELIRIUM
     Route: 065
     Dates: start: 20191116, end: 20191117
  49. ALBUMINAR [Concomitant]
     Active Substance: ALBUMIN HUMAN
     Indication: HYPOALBUMINAEMIA
     Route: 042
     Dates: start: 20191117, end: 20191119
  50. ATEZOLIZUMAB. [Suspect]
     Active Substance: ATEZOLIZUMAB
     Indication: HEPATOCELLULAR CARCINOMA
     Dosage: ON DAY 1 OF EACH 21 DAY CYCLE?DATE OF MOST RECENT DOSE OF ATEZOLIZUMAB (1200 MG) PRIOR TO AE/SAE ONS
     Route: 042
     Dates: start: 20181001
  51. PHYSIO 140 [Concomitant]
     Active Substance: CALCIUM GLUCONATE\DEXTROSE\MAGNESIUM CHLORIDE\POTASSIUM CHLORIDE\SODIUM ACETATE\SODIUM CHLORIDE\TRISODIUM CITRATE DIHYDRATE
     Route: 065
     Dates: start: 20191116, end: 20191116
  52. FEBUXOSTAT. [Concomitant]
     Active Substance: FEBUXOSTAT
     Indication: HYPERURICAEMIA
     Route: 065
     Dates: start: 20191109, end: 20191124

REACTIONS (2)
  - Myositis [Not Recovered/Not Resolved]
  - Aspartate aminotransferase increased [Recovered/Resolved]

NARRATIVE: CASE EVENT DATE: 20191103
